FAERS Safety Report 18400411 (Version 1)
Quarter: 2020Q4

REPORT INFORMATION
  Report Type: Spontaneous
  Country: AU (occurrence: AU)
  Receive Date: 20201019
  Receipt Date: 20201019
  Transmission Date: 20210114
  Serious: Yes (Other)
  Sender: FDA-Public Use
  Company Number: AU-ROCHE-2696432

PATIENT
  Sex: Female

DRUGS (1)
  1. AVASTIN [Suspect]
     Active Substance: BEVACIZUMAB
     Indication: LARYNGEAL PAPILLOMA
     Route: 042

REACTIONS (3)
  - Laryngeal papilloma [Unknown]
  - Off label use [Unknown]
  - Intentional product use issue [Unknown]
